FAERS Safety Report 10065677 (Version 1)
Quarter: 2014Q2

REPORT INFORMATION
  Report Type: Spontaneous
  Country: US (occurrence: US)
  Receive Date: 20140408
  Receipt Date: 20140408
  Transmission Date: 20141212
  Serious: No
  Sender: FDA-Public Use
  Company Number: US-PFIZER INC-2014096660

PATIENT
  Age: 32 Year
  Sex: Male
  Weight: 140.59 kg

DRUGS (3)
  1. ADVIL [Suspect]
     Indication: PAIN
     Dosage: 400 MG (2X200 MG),TWO TIMES A DAY
     Dates: end: 20140402
  2. PAXIL [Concomitant]
     Indication: ANXIETY
     Dosage: 20 MG, DAILY
  3. TRAZODONE [Concomitant]
     Indication: INSOMNIA
     Dosage: 100 MG, DAILY

REACTIONS (3)
  - Urticaria [Recovered/Resolved]
  - Peripheral swelling [Not Recovered/Not Resolved]
  - Product quality issue [Not Recovered/Not Resolved]
